FAERS Safety Report 4326142-7 (Version None)
Quarter: 2004Q1

REPORT INFORMATION
  Report Type: 
  Country: None (occurrence: None)
  Receive Date: 20040323
  Receipt Date: 20040218
  Transmission Date: 20041129
  Serious: No
  Sender: FDA-Public Use
  Company Number: US_0402100918

PATIENT
  Age: 81 Year
  Sex: Male

DRUGS (3)
  1. CIALIS [Suspect]
     Dosage: 20 MG
     Dates: start: 20040215
  2. NEXIUM [Concomitant]
  3. ASA (ACETYSALICYLIC ACID) [Concomitant]

REACTIONS (1)
  - THERAPEUTIC RESPONSE DECREASED [None]
